FAERS Safety Report 8216658-5 (Version None)
Quarter: 2012Q1

REPORT INFORMATION
  Report Type: 
  Country: None (occurrence: None)
  Receive Date: 20120316
  Receipt Date: 20120312
  Transmission Date: 20120608
  Serious: Yes (Life-Threatening, Hospitalization)
  Sender: FDA-Public Use
  Company Number: FR-ASTRAZENECA-2012SE17323

PATIENT
  Age: 30 Year
  Sex: Male

DRUGS (3)
  1. QUETIAPINE FUMARATE [Suspect]
     Indication: BIPOLAR DISORDER
     Route: 048
     Dates: start: 20111201, end: 20111201
  2. MEPRONIZINE [Suspect]
     Route: 065
  3. METHADONE HCL [Concomitant]
     Indication: DRUG DEPENDENCE

REACTIONS (2)
  - SUICIDE ATTEMPT [None]
  - OVERDOSE [None]
